FAERS Safety Report 23378796 (Version 1)
Quarter: 2024Q1

REPORT INFORMATION
  Report Type: Spontaneous
  Country: US (occurrence: None)
  Receive Date: 20240108
  Receipt Date: 20240108
  Transmission Date: 20240410
  Serious: Yes (Hospitalization)
  Sender: FDA-Public Use
  Company Number: None

PATIENT
  Age: 37 Year
  Sex: Male

DRUGS (4)
  1. XYNTHA [Suspect]
     Active Substance: ANTIHEMOPHILIC FACTOR, HUMAN RECOMBINANT RESIDUES 743-1636 DELETED
     Indication: Factor VIII deficiency
     Dosage: OTHER QUANTITY : 1925 U;?FREQUENCY : AS NEEDED;?
     Route: 042
     Dates: start: 202310
  2. AMINOCAPROIC ACID [Suspect]
     Active Substance: AMINOCAPROIC ACID
     Dosage: OTHER STRENGTH : 0.25GM/ML;?FREQUENCY : EVERY 6 HOURS;?
     Route: 048
     Dates: start: 202309
  3. SOD CHLOR POSIFLUSH [Concomitant]
  4. HEPARIN L/L FLUSH SYR [Concomitant]

REACTIONS (1)
  - Epistaxis [None]

NARRATIVE: CASE EVENT DATE: 20231215
